FAERS Safety Report 17943846 (Version 1)
Quarter: 2020Q2

REPORT INFORMATION
  Report Type: Spontaneous
  Country: ES (occurrence: ES)
  Receive Date: 20200625
  Receipt Date: 20200625
  Transmission Date: 20200714
  Serious: Yes (Hospitalization)
  Sender: FDA-Public Use
  Company Number: NVSC2020ES179128

PATIENT
  Age: 57 Year
  Sex: Female

DRUGS (7)
  1. AZITROMICINA [Suspect]
     Active Substance: AZITHROMYCIN DIHYDRATE
     Indication: CORONAVIRUS INFECTION
     Dosage: 500 MG, QD
     Route: 048
     Dates: start: 20200327, end: 20200330
  2. ROACTEMRA [Suspect]
     Active Substance: TOCILIZUMAB
     Indication: CORONAVIRUS INFECTION
     Dosage: 600 MG, TOTAL
     Route: 042
     Dates: start: 20200328, end: 20200328
  3. ROACTEMRA [Suspect]
     Active Substance: TOCILIZUMAB
     Indication: SEVERE ACUTE RESPIRATORY SYNDROME
  4. HIDROXICLOROQUINA [Suspect]
     Active Substance: HYDROXYCHLOROQUINE
     Indication: CORONAVIRUS INFECTION
  5. LOPINAVIR/RITONAVIR [Suspect]
     Active Substance: LOPINAVIR\RITONAVIR
     Indication: PNEUMONIA
     Dosage: 2U CADA 12H
     Route: 048
     Dates: start: 20200327, end: 20200404
  6. LOPINAVIR/RITONAVIR [Suspect]
     Active Substance: LOPINAVIR\RITONAVIR
     Indication: CORONAVIRUS INFECTION
  7. HIDROXICLOROQUINA [Suspect]
     Active Substance: HYDROXYCHLOROQUINE
     Indication: PNEUMONIA
     Dosage: 400 MG, Q24H
     Route: 048
     Dates: start: 20200327, end: 20200330

REACTIONS (2)
  - Condition aggravated [Recovering/Resolving]
  - Hepatitis [Recovering/Resolving]

NARRATIVE: CASE EVENT DATE: 20200330
